FAERS Safety Report 11769386 (Version 1)
Quarter: 2015Q4

REPORT INFORMATION
  Report Type: Spontaneous
  Country: GB (occurrence: GB)
  Receive Date: 20151123
  Receipt Date: 20151123
  Transmission Date: 20160304
  Serious: Yes (Other)
  Sender: FDA-Public Use
  Company Number: GB-BAYER-2015-468097

PATIENT
  Sex: Female

DRUGS (1)
  1. BETAFERON [Suspect]
     Active Substance: INTERFERON BETA-1B
     Indication: MULTIPLE SCLEROSIS
     Dosage: 250 ?G, QOD
     Route: 058
     Dates: start: 20091207, end: 201510

REACTIONS (7)
  - Visual acuity reduced [None]
  - Hypersomnia [Recovering/Resolving]
  - Local swelling [None]
  - Vascular pain [Recovering/Resolving]
  - Impaired self-care [Recovering/Resolving]
  - Feeling abnormal [Recovering/Resolving]
  - Hearing impaired [Recovering/Resolving]
